FAERS Safety Report 18944958 (Version 1)
Quarter: 2021Q1

REPORT INFORMATION
  Report Type: Spontaneous
  Country: FR (occurrence: FR)
  Receive Date: 20210226
  Receipt Date: 20210226
  Transmission Date: 20210420
  Serious: Yes (Other)
  Sender: FDA-Public Use
  Company Number: FR-GLAXOSMITHKLINE-FR2021048137

PATIENT
  Age: 14 Year
  Sex: Male
  Weight: 59 kg

DRUGS (1)
  1. VENTOLIN [Suspect]
     Active Substance: ALBUTEROL SULFATE
     Indication: ASTHMATIC CRISIS
     Dosage: 10 DF (SINGLE)
     Route: 055
     Dates: start: 20210211

REACTIONS (5)
  - Tachycardia [Recovered/Resolved]
  - Tremor [Recovered/Resolved]
  - Medication error [Recovered/Resolved]
  - Wrong dose [Recovered/Resolved]
  - Headache [Recovered/Resolved]

NARRATIVE: CASE EVENT DATE: 20210211
